FAERS Safety Report 16180554 (Version 1)
Quarter: 2019Q2

REPORT INFORMATION
  Report Type: Spontaneous
  Country: SE (occurrence: SE)
  Receive Date: 20190410
  Receipt Date: 20190410
  Transmission Date: 20190711
  Serious: Yes (Other)
  Sender: FDA-Public Use
  Company Number: SE-SA-A01200203253

PATIENT
  Age: 35 Year
  Sex: Female

DRUGS (6)
  1. PAROXETINE HYDROCHLORIDE. [Suspect]
     Active Substance: PAROXETINE HYDROCHLORIDE
     Indication: NEUROSIS
     Dosage: UNK UNK,UNK
     Route: 048
     Dates: start: 2000, end: 20010426
  2. PROPAVAN [Suspect]
     Active Substance: PROPIOMAZINE
     Dosage: UNK UNK,UNK
     Route: 048
     Dates: start: 20010530, end: 200107
  3. HYDROXYZINE [Suspect]
     Active Substance: HYDROXYZINE HYDROCHLORIDE
     Indication: NEUROSIS
     Dosage: UNK UNK,UNK
     Route: 048
     Dates: start: 2000, end: 20010426
  4. STILNOCT [Suspect]
     Active Substance: ZOLPIDEM TARTRATE
     Indication: ILL-DEFINED DISORDER
     Dosage: UNK UNK,UNK
     Route: 048
     Dates: start: 2000, end: 20010426
  5. PROMETHAZINE HYDROCHLORIDE. [Suspect]
     Active Substance: PROMETHAZINE HYDROCHLORIDE
     Dosage: UNK UNK,UNK
     Route: 048
     Dates: start: 20010430, end: 200107
  6. ALPRAZOLAM. [Suspect]
     Active Substance: ALPRAZOLAM
     Indication: NEUROSIS
     Dosage: UNK UNK,UNK
     Route: 048
     Dates: start: 2000, end: 20010426

REACTIONS (3)
  - Exposure during pregnancy [Unknown]
  - Abortion spontaneous [Unknown]
  - Withdrawal syndrome [Unknown]

NARRATIVE: CASE EVENT DATE: 20010424
